FAERS Safety Report 11572320 (Version 2)
Quarter: 2015Q4

REPORT INFORMATION
  Report Type: Spontaneous
  Country: US (occurrence: US)
  Receive Date: 20150929
  Receipt Date: 20151030
  Transmission Date: 20160304
  Serious: No
  Sender: FDA-Public Use
  Company Number: US-PFIZER INC-2015314500

PATIENT
  Age: 37 Year
  Sex: Female
  Weight: 55 kg

DRUGS (11)
  1. PRILOSEC [Concomitant]
     Active Substance: OMEPRAZOLE MAGNESIUM
     Dosage: 20 MG, 1X/DAY
  2. TRILEPTAL [Concomitant]
     Active Substance: OXCARBAZEPINE
     Dosage: 1800 MG, DAILY (600 MG, 3 IN A DAY)
     Route: 048
  3. TRAZODONE [Concomitant]
     Active Substance: TRAZODONE HYDROCHLORIDE
     Dosage: 150 MG, UNK
  4. CLONAZEPAM. [Concomitant]
     Active Substance: CLONAZEPAM
     Dosage: 1.5 MG, DAILY (0.5 MG, 3 IN 1 DAY)
     Route: 048
  5. TRAZODONE [Concomitant]
     Active Substance: TRAZODONE HYDROCHLORIDE
     Dosage: 100 MG, 1X/DAY (HS)
  6. LYRICA [Suspect]
     Active Substance: PREGABALIN
     Dosage: 150 MG, DAILY (75 MG 2 IN 1DAY)
     Dates: start: 20130314, end: 201503
  7. DILANTIN [Concomitant]
     Active Substance: PHENYTOIN
     Dosage: 300 MG, DAILY (100 MG,3 IN 1 DAY)
  8. KLONOPIN [Concomitant]
     Active Substance: CLONAZEPAM
     Dosage: 1.5 MG, DAILY (0.5 MG, 3 IN 1 DAY)
  9. AMOXICILLIN/CLAVULANATE POTASSIUM [Concomitant]
     Dosage: 1500 MG, DAILY (500 MG,3 IN 1 DAY)
  10. ONFI [Suspect]
     Active Substance: CLOBAZAM
     Indication: LENNOX-GASTAUT SYNDROME
     Dosage: 20 MG, DAILY (10 MG, 2 IN 1 DAY)
     Route: 048
     Dates: start: 20130226
  11. ONFI [Suspect]
     Active Substance: CLOBAZAM
     Indication: SEIZURE
     Dosage: UNK
     Route: 048
     Dates: start: 20130314, end: 20130402

REACTIONS (8)
  - Dyskinesia [Unknown]
  - Abnormal dreams [Unknown]
  - Crying [Unknown]
  - Anger [Unknown]
  - Anxiety [Unknown]
  - Abnormal behaviour [Unknown]
  - Somnolence [Unknown]
  - Irritability [Unknown]
